FAERS Safety Report 8540602-4 (Version None)
Quarter: 2012Q3

REPORT INFORMATION
  Report Type: 
  Country: None (occurrence: None)
  Receive Date: 20120726
  Receipt Date: 20120717
  Transmission Date: 20120928
  Serious: Yes (Hospitalization, Other)
  Sender: FDA-Public Use
  Company Number: US-ELI_LILLY_AND_COMPANY-US201207006015

PATIENT
  Sex: Female

DRUGS (5)
  1. HUMALOG [Suspect]
     Dosage: 30 U, EACH EVENING
  2. HUMULIN 70/30 [Suspect]
     Indication: DIABETES MELLITUS
  3. HUMULIN R [Suspect]
     Indication: DIABETES MELLITUS
     Dosage: UNK, UNKNOWN
     Dates: start: 19980101
  4. LANTUS [Concomitant]
     Dosage: 60 U, EACH EVENING
  5. HUMALOG [Suspect]
     Indication: DIABETES MELLITUS
     Dosage: 20 U, BID

REACTIONS (6)
  - CEREBROVASCULAR ACCIDENT [None]
  - PETIT MAL EPILEPSY [None]
  - VISUAL ACUITY REDUCED [None]
  - SENSORY LOSS [None]
  - WRONG DRUG ADMINISTERED [None]
  - CATARACT [None]
